FAERS Safety Report 4929909-7 (Version None)
Quarter: 2006Q1

REPORT INFORMATION
  Report Type: 
  Country: None (occurrence: None)
  Receive Date: 20060227
  Receipt Date: 20060213
  Transmission Date: 20060701
  Serious: Yes (Life-Threatening, Hospitalization, Disabling, Other)
  Sender: FDA-Public Use
  Company Number: 2003008068

PATIENT
  Sex: Female
  Weight: 158.759 kg

DRUGS (5)
  1. NEURONTIN [Suspect]
     Indication: CONVULSION
     Dosage: 900 MG (300 MG, 3 IN 1 D)
     Dates: start: 19950101, end: 20010101
  2. DILANTIN [Suspect]
     Indication: CONVULSION
     Dosage: 1200 MG (3 D), ORAL
     Route: 048
     Dates: start: 19930101, end: 19950101
  3. ASPIRIN [Suspect]
     Indication: ARTHRITIS
  4. VITAMINS WITH MINERALS (VITAMINS WITH MINERALS) [Suspect]
     Indication: ANAEMIA
  5. DANAZOL [Suspect]
     Indication: ENDOMETRIOSIS
     Dates: start: 19960101

REACTIONS (43)
  - ABNORMAL BEHAVIOUR [None]
  - AGITATION [None]
  - ANAEMIA [None]
  - APLASTIC ANAEMIA [None]
  - ARTHRALGIA [None]
  - AURA [None]
  - BALANCE DISORDER [None]
  - BONE MARROW FAILURE [None]
  - BURNS SECOND DEGREE [None]
  - CEREBROVASCULAR ACCIDENT [None]
  - COMA [None]
  - CRYING [None]
  - DIFFICULTY IN WALKING [None]
  - DISORIENTATION [None]
  - DIZZINESS [None]
  - DRUG INEFFECTIVE [None]
  - DRUG INTERACTION [None]
  - DRUG LEVEL BELOW THERAPEUTIC [None]
  - DRUG TOXICITY [None]
  - DRUG WITHDRAWAL SYNDROME [None]
  - DRY MOUTH [None]
  - ENDOMETRIOSIS [None]
  - FALL [None]
  - FEELING ABNORMAL [None]
  - GRAND MAL CONVULSION [None]
  - HEADACHE [None]
  - IMPAIRED DRIVING ABILITY [None]
  - MOBILITY DECREASED [None]
  - MUSCLE DISORDER [None]
  - MUSCLE SPASMS [None]
  - NERVE INJURY [None]
  - NERVOUSNESS [None]
  - PAIN [None]
  - PAIN IN EXTREMITY [None]
  - PANCYTOPENIA [None]
  - PANIC ATTACK [None]
  - PARALYSIS [None]
  - ROAD TRAFFIC ACCIDENT [None]
  - SHOULDER PAIN [None]
  - SPEECH DISORDER [None]
  - STRESS [None]
  - TREMOR [None]
  - VAGINAL HAEMORRHAGE [None]
